FAERS Safety Report 9370738 (Version 2)
Quarter: 2013Q3

REPORT INFORMATION
  Report Type: Spontaneous
  Country: BR (occurrence: BR)
  Receive Date: 20130626
  Receipt Date: 20130705
  Transmission Date: 20140515
  Serious: Yes (Death, Hospitalization, Other)
  Sender: FDA-Public Use
  Company Number: BR-ABBOTT-13P-020-1109754-00

PATIENT
  Sex: Male

DRUGS (1)
  1. HUMIRA [Suspect]
     Indication: PRODUCT USED FOR UNKNOWN INDICATION

REACTIONS (8)
  - Infection [Fatal]
  - Platelet count decreased [Unknown]
  - Anaemia [Unknown]
  - White blood cell count increased [Unknown]
  - Furuncle [Unknown]
  - Blister [Unknown]
  - Diabetes mellitus inadequate control [Unknown]
  - Impaired healing [Unknown]
